FAERS Safety Report 9555143 (Version 1)
Quarter: 2013Q3

REPORT INFORMATION
  Report Type: Spontaneous
  Country: US (occurrence: None)
  Receive Date: 20130925
  Receipt Date: 20130925
  Transmission Date: 20140515
  Serious: Yes (Other)
  Sender: FDA-Public Use
  Company Number: None

PATIENT
  Age: 36 Year
  Sex: Female
  Weight: 60 kg

DRUGS (6)
  1. GAMMAGARD [Suspect]
     Indication: IMMUNODEFICIENCY COMMON VARIABLE
     Route: 042
     Dates: start: 20121204, end: 20130628
  2. ACETAMINOPHEN [Concomitant]
  3. CETIRIZINE [Concomitant]
  4. PRENETAL IRON-MULTIVITAMIN [Concomitant]
  5. VITAMIN D [Concomitant]
  6. HYPERTONIC NASAL WASH [Concomitant]

REACTIONS (1)
  - Hypoacusis [None]
